FAERS Safety Report 18760546 (Version 1)
Quarter: 2021Q1

REPORT INFORMATION
  Report Type: Spontaneous
  Country: US (occurrence: US)
  Receive Date: 20210119
  Receipt Date: 20210119
  Transmission Date: 20210419
  Serious: Yes (Hospitalization)
  Sender: FDA-Public Use
  Company Number: US-ROCHE-2492273

PATIENT
  Sex: Female

DRUGS (1)
  1. RITUXAN [Suspect]
     Active Substance: RITUXIMAB
     Indication: PRODUCT USED FOR UNKNOWN INDICATION
     Route: 065

REACTIONS (6)
  - Infection [Unknown]
  - Pneumonia [Unknown]
  - Skin exfoliation [Not Recovered/Not Resolved]
  - Wound [Unknown]
  - Stomatitis [Not Recovered/Not Resolved]
  - Ulcer [Not Recovered/Not Resolved]
